FAERS Safety Report 10144216 (Version 1)
Quarter: 2014Q2

REPORT INFORMATION
  Report Type: Spontaneous
  Country: PT (occurrence: PT)
  Receive Date: 20140430
  Receipt Date: 20140430
  Transmission Date: 20141212
  Serious: Yes (Hospitalization)
  Sender: FDA-Public Use
  Company Number: PHHY2014PT050512

PATIENT
  Age: 18 Year
  Sex: Female

DRUGS (5)
  1. MYCOPHENOLATE MOFETIL [Suspect]
  2. METHYLPREDNISOLONE [Suspect]
  3. NIFEDIPINE [Suspect]
  4. PROPRANOLOL [Suspect]
  5. OMEPRAZOLE [Suspect]

REACTIONS (4)
  - Neuropsychiatric lupus [Recovered/Resolved]
  - VIIth nerve paralysis [Unknown]
  - Generalised tonic-clonic seizure [Unknown]
  - Hyperreflexia [Unknown]
